FAERS Safety Report 10185564 (Version 6)
Quarter: 2014Q4

REPORT INFORMATION
  Report Type: Spontaneous
  Country: US (occurrence: US)
  Receive Date: 20140521
  Receipt Date: 20141027
  Transmission Date: 20150528
  Serious: Yes (Other)
  Sender: FDA-Public Use
  Company Number: US-PFIZER INC-2014135777

PATIENT
  Age: 50 Year
  Sex: Male
  Weight: 94.79 kg

DRUGS (4)
  1. LYRICA [Suspect]
     Active Substance: PREGABALIN
     Indication: PAIN
     Dosage: 20 MG, 2X/DAY
     Dates: start: 201405, end: 201406
  2. ASPIRIN. [Concomitant]
     Active Substance: ASPIRIN
     Dosage: UNK
  3. LOSARTAN [Concomitant]
     Active Substance: LOSARTAN
     Indication: HYPERTENSION
     Dosage: 75 MG, DAILY
  4. LYRICA [Suspect]
     Active Substance: PREGABALIN
     Indication: MUSCULOSKELETAL PAIN
     Dosage: UNK

REACTIONS (16)
  - Loss of consciousness [Unknown]
  - Balance disorder [Unknown]
  - Diplopia [Unknown]
  - Dizziness [Unknown]
  - Visual impairment [Unknown]
  - Mood swings [Unknown]
  - Quality of life decreased [Unknown]
  - Pain [Unknown]
  - Product use issue [Unknown]
  - Abasia [Unknown]
  - Impaired work ability [Unknown]
  - Disturbance in attention [Unknown]
  - Fatigue [Unknown]
  - Headache [Unknown]
  - Feeling abnormal [Unknown]
  - Insomnia [Unknown]

NARRATIVE: CASE EVENT DATE: 2014
